FAERS Safety Report 15851340 (Version 1)
Quarter: 2019Q1

REPORT INFORMATION
  Report Type: Spontaneous
  Country: GB (occurrence: GB)
  Receive Date: 20190122
  Receipt Date: 20190122
  Transmission Date: 20190417
  Serious: Yes (Life-Threatening, Other)
  Sender: FDA-Public Use
  Company Number: GB-TEVA-2019-GB-1001916

PATIENT
  Age: 79 Year
  Sex: Female
  Weight: 58.06 kg

DRUGS (12)
  1. PREDNISOLONE. [Concomitant]
     Active Substance: PREDNISOLONE
     Dosage: 2 MILLIGRAM DAILY;
  2. CODEINE [Concomitant]
     Active Substance: CODEINE
  3. THEICAL-D3 [Concomitant]
  4. PARACETAMOL [Concomitant]
     Active Substance: ACETAMINOPHEN
  5. PROPRANOLOL [Suspect]
     Active Substance: PROPRANOLOL HYDROCHLORIDE
     Indication: MIGRAINE
     Dosage: 80 MILLIGRAM DAILY;
     Route: 048
     Dates: start: 20181207, end: 20181214
  6. ACETYLSALICYLIC ACID [Concomitant]
     Active Substance: ASPIRIN
  7. ESOMEPRAZOLE. [Concomitant]
     Active Substance: ESOMEPRAZOLE MAGNESIUM
  8. AMITRIPTYLINE [Concomitant]
     Active Substance: AMITRIPTYLINE
  9. RISEDRONATE SODIUM. [Concomitant]
     Active Substance: RISEDRONATE SODIUM
  10. FELODIPINE. [Concomitant]
     Active Substance: FELODIPINE
  11. RAMIPRIL. [Concomitant]
     Active Substance: RAMIPRIL
  12. SIMVASTATIN. [Concomitant]
     Active Substance: SIMVASTATIN

REACTIONS (8)
  - Nausea [Unknown]
  - Diarrhoea [Not Recovered/Not Resolved]
  - Anxiety [Unknown]
  - Tremor [Not Recovered/Not Resolved]
  - Malaise [Not Recovered/Not Resolved]
  - Feeling hot [Not Recovered/Not Resolved]
  - Product prescribing error [Unknown]
  - Headache [Not Recovered/Not Resolved]

NARRATIVE: CASE EVENT DATE: 20181213
